FAERS Safety Report 15881598 (Version 2)
Quarter: 2019Q1

REPORT INFORMATION
  Report Type: Spontaneous
  Country: CA (occurrence: CA)
  Receive Date: 20190128
  Receipt Date: 20190214
  Transmission Date: 20190417
  Serious: Yes (Other)
  Sender: FDA-Public Use
  Company Number: CA-PFIZER INC-2018437685

PATIENT
  Age: 48 Year
  Sex: Female

DRUGS (10)
  1. DOMPERIDONE [Concomitant]
     Active Substance: DOMPERIDONE
     Dosage: UNK
  2. TURMERIC [CURCUMA LONGA RHIZOME] [Concomitant]
     Active Substance: HERBALS\TURMERIC
     Dosage: UNK
  3. MAGNESIUM [Concomitant]
     Active Substance: MAGNESIUM
     Dosage: UNK
  4. WELLBUTRIN [Concomitant]
     Active Substance: BUPROPION HYDROCHLORIDE
     Dosage: UNK
  5. TECTA [Concomitant]
     Active Substance: PANTOPRAZOLE MAGNESIUM
     Dosage: UNK
  6. LEFLUNOMIDE. [Concomitant]
     Active Substance: LEFLUNOMIDE
     Dosage: UNK
  7. PREDNISONE. [Concomitant]
     Active Substance: PREDNISONE
     Dosage: UNK
  8. OMEGA 3 ACID ETHYL ESTERS [Concomitant]
     Active Substance: OMEGA-3-ACID ETHYL ESTERS
     Dosage: UNK
  9. XELJANZ [Suspect]
     Active Substance: TOFACITINIB CITRATE
     Indication: RHEUMATOID ARTHRITIS
     Dosage: 5 MG, 2X/DAY
     Route: 048
     Dates: start: 20181005
  10. VITAMIN D [Concomitant]
     Active Substance: CHOLECALCIFEROL
     Dosage: UNK

REACTIONS (16)
  - Abdominal pain [Unknown]
  - Lethargy [Unknown]
  - Sensitivity to weather change [Unknown]
  - Joint swelling [Unknown]
  - Arthralgia [Unknown]
  - Colitis ulcerative [Unknown]
  - Abdominal discomfort [Unknown]
  - Pain [Unknown]
  - Depressed mood [Not Recovered/Not Resolved]
  - Haemorrhage [Unknown]
  - Reversed hot-cold sensation [Unknown]
  - Musculoskeletal stiffness [Unknown]
  - Drug ineffective [Unknown]
  - Gastrointestinal pain [Unknown]
  - Nausea [Unknown]
  - Abdominal distension [Unknown]
